FAERS Safety Report 9092863 (Version 1)
Quarter: 2013Q1

REPORT INFORMATION
  Report Type: Spontaneous
  Country: US (occurrence: None)
  Receive Date: 20130213
  Receipt Date: 20130213
  Transmission Date: 20140127
  Serious: Yes (Hospitalization)
  Sender: FDA-Public Use
  Company Number: None

PATIENT
  Age: 55 Year
  Sex: Female
  Weight: 53.5 kg

DRUGS (1)
  1. VITAMINS WITH MINERALS [Suspect]
     Route: 048

REACTIONS (2)
  - Drug-induced liver injury [None]
  - Hot flush [None]
